FAERS Safety Report 8399274-4 (Version None)
Quarter: 2012Q2

REPORT INFORMATION
  Report Type: 
  Country: None (occurrence: None)
  Receive Date: 20120531
  Receipt Date: 20120524
  Transmission Date: 20120825
  Serious: Yes (Life-Threatening, Hospitalization, Disabling)
  Sender: FDA-Public Use
  Company Number: SA-GLAXOSMITHKLINE-B0804317A

PATIENT
  Age: 46 Year
  Sex: Female

DRUGS (2)
  1. LAPATINIB [Suspect]
     Indication: BREAST CANCER METASTATIC
     Dosage: 1000MG PER DAY
     Route: 048
  2. CAPECITABINE [Concomitant]
     Indication: BREAST CANCER METASTATIC
     Dosage: 850MGM2 TWICE PER DAY
     Route: 065

REACTIONS (3)
  - HYPOTENSION [None]
  - SHOCK [None]
  - DIARRHOEA HAEMORRHAGIC [None]
